FAERS Safety Report 22080539 (Version 1)
Quarter: 2023Q1

REPORT INFORMATION
  Report Type: Spontaneous
  Country: US (occurrence: US)
  Receive Date: 20230309
  Receipt Date: 20230309
  Transmission Date: 20230418
  Serious: Yes (Hospitalization, Other)
  Sender: FDA-Public Use
  Company Number: US-ANTARES PHARMA, INC.-2023-SPO-TX-0716

PATIENT

DRUGS (1)
  1. XYOSTED [Suspect]
     Active Substance: TESTOSTERONE ENANTHATE
     Indication: Product used for unknown indication
     Dosage: 75 MG/0.5ML, QWK
     Route: 058
     Dates: start: 2023

REACTIONS (3)
  - Pancreatitis acute [Recovered/Resolved]
  - Abdominal pain [Recovered/Resolved]
  - Delirium tremens [Recovered/Resolved]

NARRATIVE: CASE EVENT DATE: 20230101
